FAERS Safety Report 11139529 (Version 1)
Quarter: 2015Q2

REPORT INFORMATION
  Report Type: Spontaneous
  Country: SE (occurrence: SE)
  Receive Date: 20150527
  Receipt Date: 20150527
  Transmission Date: 20150821
  Serious: Yes (Hospitalization, Other)
  Sender: FDA-Public Use
  Company Number: SE-CIPLA LTD.-2015SE04041

PATIENT

DRUGS (2)
  1. TAMOXIFEN [Suspect]
     Active Substance: TAMOXIFEN
     Indication: BREAST CANCER RECURRENT
     Dosage: 20 MG, DAILY
     Route: 065
  2. ANASTROZOLE. [Suspect]
     Active Substance: ANASTROZOLE
     Indication: BREAST CANCER RECURRENT
     Dosage: 1 MG, DAILY
     Route: 065

REACTIONS (8)
  - Hypercalcaemia [Not Recovered/Not Resolved]
  - Fluid retention [Unknown]
  - Breast cancer recurrent [Unknown]
  - Thirst [Unknown]
  - Blood parathyroid hormone increased [Not Recovered/Not Resolved]
  - Fatigue [Unknown]
  - Osteopenia [Unknown]
  - Weight decreased [Unknown]
